FAERS Safety Report 8092672-8 (Version None)
Quarter: 2012Q1

REPORT INFORMATION
  Report Type: 
  Country: None (occurrence: None)
  Receive Date: 20120131
  Receipt Date: 20120126
  Transmission Date: 20120608
  Serious: Yes (Other)
  Sender: FDA-Public Use
  Company Number: JP-BAYER-2011-119100

PATIENT
  Age: 68 Year
  Sex: Male

DRUGS (5)
  1. OMEPRAZOLE [Concomitant]
     Dosage: DAILY DOSE 10 MG
     Route: 048
     Dates: start: 20091224
  2. GLYCYRON [AMINOACETIC ACID,DL-METHIONINE,GLYCYRRHIZIC ACID] [Concomitant]
     Dosage: DAILY DOSE 6 DF
     Route: 048
     Dates: start: 20100626
  3. NEXAVAR [Suspect]
     Indication: HEPATIC NEOPLASM MALIGNANT
     Dosage: DAILY DOSE 400 MG
     Route: 048
     Dates: start: 20111119, end: 20111202
  4. URSO 250 [Concomitant]
     Dosage: DAILY DOSE 600 MG
     Route: 048
     Dates: start: 20091224
  5. CONIEL [Concomitant]
     Dosage: DAILY DOSE 8 MG
     Route: 048
     Dates: start: 20111119, end: 20120114

REACTIONS (2)
  - TOXIC SKIN ERUPTION [None]
  - ORAL MUCOSA EROSION [None]
